FAERS Safety Report 5253531-9 (Version None)
Quarter: 2007Q1

REPORT INFORMATION
  Report Type: 
  Country: None (occurrence: None)
  Receive Date: 20070301
  Receipt Date: 20070219
  Transmission Date: 20070707
  Serious: Yes (Other)
  Sender: FDA-Public Use
  Company Number: GB-PFIZER INC-2007014060

PATIENT
  Age: 34 Year
  Sex: Female
  Weight: 85 kg

DRUGS (7)
  1. LYRICA [Suspect]
     Route: 048
  2. BACLOFEN [Concomitant]
     Route: 048
     Dates: start: 20060201, end: 20061101
  3. CEPHALEXIN [Concomitant]
     Dosage: FREQ:ONCE DAILY
     Route: 048
  4. IMIPRAMINE [Concomitant]
     Dates: start: 20060201, end: 20061101
  5. NORMACOL [Concomitant]
     Dosage: FREQ:ONCE DAILY
     Route: 048
  6. PARACETAMOL [Concomitant]
     Route: 048
  7. PENICILLIN [Concomitant]
     Route: 048

REACTIONS (1)
  - GALACTORRHOEA [None]
